FAERS Safety Report 19565030 (Version 1)
Quarter: 2021Q3

REPORT INFORMATION
  Report Type: Spontaneous
  Country: US (occurrence: US)
  Receive Date: 20210716
  Receipt Date: 20210716
  Transmission Date: 20211014
  Serious: Yes (Other)
  Sender: FDA-Public Use
  Company Number: US-PFIZER INC-2021832174

PATIENT
  Age: 69 Year
  Sex: Female
  Weight: 47.17 kg

DRUGS (6)
  1. PROPRANOLOL [Concomitant]
     Active Substance: PROPRANOLOL HYDROCHLORIDE
     Dosage: 10 MG
  2. IBRANCE [Suspect]
     Active Substance: PALBOCICLIB
     Indication: BREAST CANCER FEMALE
     Dosage: 100 MG, CYCLIC (DAILY FOR 21 DAYS)
     Route: 048
     Dates: start: 202009
  3. IBUPROFEN ABECE [Concomitant]
     Dosage: 200 MG
  4. LETROZOLE. [Concomitant]
     Active Substance: LETROZOLE
     Dosage: 2.5 MG
  5. PROZAC [Concomitant]
     Active Substance: FLUOXETINE HYDROCHLORIDE
     Dosage: 10 MG
  6. GABAPENTIN. [Concomitant]
     Active Substance: GABAPENTIN
     Dosage: 100 MG

REACTIONS (8)
  - Rash [Unknown]
  - Rotator cuff syndrome [Unknown]
  - Contusion [Unknown]
  - Movement disorder [Unknown]
  - Cardiac myxoma [Unknown]
  - Fall [Unknown]
  - Neoplasm progression [Unknown]
  - Fatigue [Unknown]
